FAERS Safety Report 19100039 (Version 1)
Quarter: 2021Q2

REPORT INFORMATION
  Report Type: Report from Study
  Country: US (occurrence: US)
  Receive Date: 20210407
  Receipt Date: 20210407
  Transmission Date: 20210717
  Serious: Yes (Other)
  Sender: FDA-Public Use
  Company Number: US-SUN PHARMACEUTICAL INDUSTRIES LTD-2021R1-289706

PATIENT
  Age: 36 Year
  Sex: Female

DRUGS (2)
  1. METHOTREXATE. [Suspect]
     Active Substance: METHOTREXATE
     Indication: PRODUCT USED FOR UNKNOWN INDICATION
     Dosage: 10 TO 25 MG/WK
     Route: 065
  2. EZETIMIBE/SIMVASTATIN [Suspect]
     Active Substance: EZETIMIBE\SIMVASTATIN
     Indication: ALOPECIA AREATA
     Dosage: ONCE?DAILY SIMVASTATIN 40 MG/EZETIMIBE 10 MG (S/E) MONOTHERAPY DE NOVO
     Route: 065

REACTIONS (1)
  - Myopathy [Recovered/Resolved]
